FAERS Safety Report 4490972-1 (Version None)
Quarter: 2004Q4

REPORT INFORMATION
  Report Type: 
  Country: None (occurrence: None)
  Receive Date: 20041027
  Receipt Date: 20041014
  Transmission Date: 20050328
  Serious: Yes (Hospitalization)
  Sender: FDA-Public Use
  Company Number: 2004044220

PATIENT
  Age: 48 Year
  Sex: Female
  Weight: 41.5 kg

DRUGS (4)
  1. ZITHROMAX [Suspect]
     Indication: OTITIS MEDIA
     Dosage: 500 MG (UNK, 1 D), ORAL
     Route: 048
     Dates: start: 20030929, end: 20031001
  2. CARBOCISTEINE (CARBOCISTEINE) [Suspect]
     Indication: UPPER RESPIRATORY TRACT INFLAMMATION
     Dosage: 1500 MG (UNK, 3 IN 1 D), ORAL
     Route: 048
     Dates: start: 20030929, end: 20031001
  3. CLOPERASTINE HYDROCHLORIDE (CLOPERASTINE HYDROCHLORIDE) [Suspect]
     Indication: UPPER RESPIRATORY TRACT INFLAMMATION
     Dosage: 30 MG (UNK, 3 IN 1 D), ORAL
     Route: 048
     Dates: start: 20030929, end: 20031001
  4. KAKKON-TO (HERBAL EXTRACTS NOS) [Suspect]
     Indication: UPPER RESPIRATORY TRACT INFLAMMATION
     Dosage: 7.5 GRAM (UNK, 3 IN 1 D), ORAL
     Route: 048
     Dates: start: 20030929, end: 20031001

REACTIONS (15)
  - ABDOMINAL DISTENSION [None]
  - ALANINE AMINOTRANSFERASE INCREASED [None]
  - ASCITES [None]
  - ASPARTATE AMINOTRANSFERASE INCREASED [None]
  - BLOOD ALKALINE PHOSPHATASE INCREASED [None]
  - BLOOD BILIRUBIN INCREASED [None]
  - DECREASED APPETITE [None]
  - DIABETES MELLITUS [None]
  - GAMMA-GLUTAMYLTRANSFERASE INCREASED [None]
  - HEPATIC FUNCTION ABNORMAL [None]
  - HEPATIC STEATOSIS [None]
  - LIVER DISORDER [None]
  - LYMPHOCYTE STIMULATION TEST POSITIVE [None]
  - MALAISE [None]
  - OEDEMA PERIPHERAL [None]
